FAERS Safety Report 7161585-8 (Version None)
Quarter: 2010Q4

REPORT INFORMATION
  Report Type: 
  Country: None (occurrence: None)
  Receive Date: 20101201
  Receipt Date: 20101118
  Transmission Date: 20110411
  Serious: Yes (Hospitalization)
  Sender: FDA-Public Use
  Company Number: CIP10002791

PATIENT
  Age: 78 Year
  Sex: Female

DRUGS (2)
  1. ACTONEL [Suspect]
     Indication: OSTEOPOROSIS
     Dosage: 17.5 MG, 1/WEEK, ORAL
     Route: 047
     Dates: start: 20100918, end: 20101101
  2. KETOPROFEN [Concomitant]

REACTIONS (2)
  - BACK PAIN [None]
  - LIVER DISORDER [None]
